FAERS Safety Report 23340932 (Version 1)
Quarter: 2023Q4

REPORT INFORMATION
  Report Type: Spontaneous
  Country: CL (occurrence: CL)
  Receive Date: 20231227
  Receipt Date: 20231227
  Transmission Date: 20240109
  Serious: No
  Sender: FDA-Public Use
  Company Number: CL-ALKEM LABORATORIES LIMITED-CL-ALKEM-2023-14139

PATIENT

DRUGS (1)
  1. VIGABATRIN [Suspect]
     Active Substance: VIGABATRIN
     Indication: Infantile spasms
     Dosage: UNK
     Route: 065

REACTIONS (2)
  - Extrapyramidal disorder [Unknown]
  - Magnetic resonance imaging abnormal [Unknown]
